FAERS Safety Report 17553738 (Version 1)
Quarter: 2020Q1

REPORT INFORMATION
  Report Type: Spontaneous
  Country: EG (occurrence: EG)
  Receive Date: 20200317
  Receipt Date: 20200317
  Transmission Date: 20200409
  Serious: Yes (Hospitalization)
  Sender: FDA-Public Use
  Company Number: EG-NOVOPROD-717970

PATIENT
  Age: 79 Year
  Sex: Male

DRUGS (2)
  1. NOVORAPID [Suspect]
     Active Substance: INSULIN ASPART
     Indication: DIABETES MELLITUS
     Dosage: 15 IU WITH BREAKFAST
     Route: 065
  2. RYZODEG 70/30 [Suspect]
     Active Substance: INSULIN ASPART\INSULIN DEGLUDEC
     Indication: DIABETES MELLITUS
     Dosage: 20 UNITS WITH LUNCH
     Route: 065
     Dates: start: 20200214, end: 20200305

REACTIONS (3)
  - Renal impairment [Unknown]
  - Hyperglycaemia [Recovering/Resolving]
  - Meningitis bacterial [Not Recovered/Not Resolved]
